FAERS Safety Report 5146940-X (Version None)
Quarter: 2006Q4

REPORT INFORMATION
  Report Type: 
  Country: None (occurrence: None)
  Receive Date: 20060914
  Receipt Date: 20060606
  Transmission Date: 20070319
  Serious: Yes (Other)
  Sender: FDA-Public Use
  Company Number: PHEH2006US07424

PATIENT
  Age: 70 Year
  Sex: Male

DRUGS (2)
  1. DIOVAN [Suspect]
     Indication: HYPERTENSION
     Dosage: 80 MG,QD, ORAL
     Route: 048
     Dates: start: 20060401, end: 20060501
  2. ZITHROMAX [Concomitant]

REACTIONS (2)
  - ANGIONEUROTIC OEDEMA [None]
  - FACE OEDEMA [None]
